FAERS Safety Report 16532124 (Version 3)
Quarter: 2019Q3

REPORT INFORMATION
  Report Type: Report from Study
  Country: DE (occurrence: DE)
  Receive Date: 20190705
  Receipt Date: 20190926
  Transmission Date: 20191004
  Serious: Yes (Other)
  Sender: FDA-Public Use
  Company Number: DE-ROCHE-2349545

PATIENT
  Sex: Female
  Weight: 65 kg

DRUGS (11)
  1. OCRELIZUMAB. [Suspect]
     Active Substance: OCRELIZUMAB
     Route: 042
     Dates: start: 20181130
  2. FAMPYRA [Concomitant]
     Active Substance: DALFAMPRIDINE
     Dosage: ONGOING?FOR IMPROVEMENT OF WALKING ABILITY
     Route: 048
  3. GABAPENTIN. [Concomitant]
     Active Substance: GABAPENTIN
     Dosage: ONGOING
     Route: 048
  4. TOLTERODINE [Concomitant]
     Active Substance: TOLTERODINE
     Route: 048
  5. ACETYLSALICYLIC ACID [Concomitant]
     Active Substance: ASPIRIN
     Dosage: ONGOING
     Route: 048
  6. SIMVAHEXAL [Concomitant]
     Active Substance: SIMVASTATIN
     Dosage: ONGOING
     Route: 048
  7. LACTULOSE. [Concomitant]
     Active Substance: LACTULOSE
     Indication: CONSTIPATION
     Route: 048
  8. DEKRISTOL [Concomitant]
     Active Substance: CHOLECALCIFEROL
     Indication: VITAMIN D DEFICIENCY
     Dosage: ONGOING
     Route: 048
  9. OCRELIZUMAB. [Suspect]
     Active Substance: OCRELIZUMAB
     Indication: PRIMARY PROGRESSIVE MULTIPLE SCLEROSIS
     Dosage: NEXT DOSE:13/JUN/2018
     Route: 042
     Dates: start: 20180530
  10. IBUHEXAL [IBUPROFEN] [Concomitant]
     Active Substance: IBUPROFEN
     Dosage: ONGOING
     Route: 048
  11. LIORESAL [Concomitant]
     Active Substance: BACLOFEN
     Dosage: ONGOING
     Route: 048

REACTIONS (1)
  - Herpes zoster [Recovered/Resolved]
